FAERS Safety Report 17206823 (Version 1)
Quarter: 2019Q4

REPORT INFORMATION
  Report Type: Spontaneous
  Country: FR (occurrence: FR)
  Receive Date: 20191227
  Receipt Date: 20191227
  Transmission Date: 20200122
  Serious: Yes (Hospitalization)
  Sender: FDA-Public Use
  Company Number: FR-MYLANLABS-2019M1126385

PATIENT
  Age: 63 Year
  Sex: Male
  Weight: 80 kg

DRUGS (29)
  1. DOLIPRANE [Suspect]
     Active Substance: ACETAMINOPHEN
     Indication: PAIN
     Dosage: IF NECESSARY (MAX 6 / DAY)
     Route: 048
     Dates: start: 20190716, end: 20190730
  2. LINEZOLIDE ARROW [Suspect]
     Active Substance: LINEZOLID
     Indication: SKIN INFECTION
     Dosage: 1200 MILLIGRAM, QD (1-0-1)
     Route: 048
     Dates: start: 20190718, end: 20190802
  3. LOVENOX [Suspect]
     Active Substance: ENOXAPARIN SODIUM
     Indication: THROMBOSIS PROPHYLAXIS
     Dosage: 4000 INTERNATIONAL UNIT, QD
     Route: 058
     Dates: start: 20190717, end: 20190729
  4. LASILIX                            /00032601/ [Concomitant]
     Active Substance: FUROSEMIDE
     Indication: CARDIAC FAILURE
     Dosage: 200 MILLIGRAM, QD (3-2-0)
     Route: 048
  5. ZYLORIC [Concomitant]
     Active Substance: ALLOPURINOL
     Indication: GOUT
     Dosage: 100 MILLIGRAM, QD (1-0-0)
     Route: 048
  6. CORTANCYL [Concomitant]
     Active Substance: PREDNISONE
     Indication: PROPHYLAXIS AGAINST TRANSPLANT REJECTION
     Dosage: 7.5 MILLIGRAM, QD (1.5-0-0)
     Route: 048
  7. EUPRESSYL                          /00631801/ [Concomitant]
     Active Substance: URAPIDIL
     Indication: HYPERTENSION
     Dosage: 120 MILLIGRAM, QD (1-0-1)
     Route: 048
  8. KLEAN-PREP [Suspect]
     Active Substance: ELECTROLYTES NOS\POLYETHYLENE GLYCOL 3350
     Indication: BOWEL PREPARATION
     Dosage: 2 SACHETS
     Route: 048
     Dates: start: 20190806, end: 20190807
  9. IMOVANE [Concomitant]
     Active Substance: ZOPICLONE
     Indication: SLEEP DISORDER
     Dosage: 3.75 MILLIGRAM, QD (0-0-1)
     Route: 048
  10. TEMERIT [Concomitant]
     Active Substance: NEBIVOLOL
     Indication: CARDIAC FAILURE
     Dosage: 2.5 MILLIGRAM, QD (1-0-0)
     Route: 048
  11. OCTREOTIDE HOSPIRA [Suspect]
     Active Substance: OCTREOTIDE
     Indication: HAEMATEMESIS
     Dosage: 300 MICROGRAM, QD
     Route: 042
     Dates: start: 20190801, end: 20190801
  12. EXACYL [Suspect]
     Active Substance: TRANEXAMIC ACID
     Indication: HAEMATEMESIS
     Dosage: 1400 MILLIGRAM, QD (1-0-1)
     Route: 042
     Dates: start: 20190804, end: 20190807
  13. CELLCEPT [Concomitant]
     Active Substance: MYCOPHENOLATE MOFETIL\MYCOPHENOLATE MOFETIL HYDROCHLORIDE
     Indication: PROPHYLAXIS AGAINST TRANSPLANT REJECTION
     Dosage: 1500 MILLIGRAM, QD (1.5-0-1.5)
     Route: 048
  14. DIFFU K [Concomitant]
     Active Substance: POTASSIUM CHLORIDE
     Indication: HYPOKALAEMIA
     Dosage: 1800 MILLIGRAM, QD (2-0-1)
     Route: 048
  15. PIPERACILLIN AND TAZOBACTAM [Suspect]
     Active Substance: PIPERACILLIN SODIUM\TAZOBACTAM SODIUM
     Indication: LUNG DISORDER
     Dosage: 3 DOSAGE FORM, QD (1-1-1)
     Route: 042
     Dates: start: 20190809, end: 20190812
  16. PANTOPRAZOLE MYLAN 40 MG, COMPRIM? GASTRO-R?SISTANT [Suspect]
     Active Substance: PANTOPRAZOLE SODIUM
     Indication: HAEMATEMESIS
     Dosage: 40 MILLIGRAM, QD (0-0-1)
     Route: 048
     Dates: start: 20190802
  17. ACTONEL [Concomitant]
     Active Substance: RISEDRONATE SODIUM
     Indication: OSTEOPOROSIS
     Dosage: 35 MILLIGRAM, QD (1-0-0)
     Route: 048
  18. ATORVASTATINE ARROW [Concomitant]
     Active Substance: ATORVASTATIN
     Indication: HYPERCHOLESTEROLAEMIA
     Dosage: 10 MILLIGRAM, QD (0-0-1)
     Route: 048
  19. OROZAMUDOL 50 MG, COMPRIM? ORODISPERSIBLE [Suspect]
     Active Substance: TRAMADOL
     Indication: PAIN
     Dosage: SI BESOIN (DLX 3/JOUR) (AS NECESSARY)
     Route: 048
     Dates: start: 20190718, end: 20190730
  20. PARACETAMOL B BRAUN [Suspect]
     Active Substance: ACETAMINOPHEN
     Indication: PAIN
     Dosage: SI BESOIN (MAX 3G/JOUR) (AS NECESSARY)
     Route: 042
     Dates: start: 20190808
  21. LEXOMIL [Concomitant]
     Active Substance: BROMAZEPAM
     Indication: ANXIETY
     Dosage: 3 MILLIGRAM, QD (0-0-1/2)
     Route: 048
  22. ACIDE FOLIQUE [Suspect]
     Active Substance: FOLIC ACID
     Indication: ANAEMIA
     Dosage: 10 MILLIGRAM, QD (1-0-1)
     Route: 048
     Dates: start: 20190806
  23. PANTOPRAZOLE SODIUM. [Suspect]
     Active Substance: PANTOPRAZOLE SODIUM
     Indication: HAEMATEMESIS
     Dosage: 192 MILLIGRAM, QD
     Route: 042
     Dates: start: 20190731, end: 20190801
  24. VENOFER [Suspect]
     Active Substance: IRON SUCROSE
     Indication: ANAEMIA
     Dosage: 300 MG EVERY OTHER DAY
     Route: 042
     Dates: start: 20190806, end: 20190810
  25. VALGANCICLOVIR MYLAN [Concomitant]
     Active Substance: VALGANCICLOVIR
     Indication: CYTOMEGALOVIRUS INFECTION
     Dosage: (1-0-0) 1 EVERY OTHER DAY
     Route: 048
  26. LANSOPRAZOLE MYLAN [Concomitant]
     Active Substance: LANSOPRAZOLE
     Indication: PROPHYLAXIS AGAINST GASTROINTESTINAL ULCER
     Dosage: 15 MILLIGRAM, QD (0-0-1)
     Route: 048
  27. KARDEGIC [Concomitant]
     Active Substance: ASPIRIN DL-LYSINE
     Indication: MYOCARDIAL ISCHAEMIA
     Dosage: 75 MILLIGRAM, QD (0-0-1)
     Route: 048
  28. UVEDOSE [Concomitant]
     Active Substance: CHOLECALCIFEROL
     Indication: VITAMIN D DEFICIENCY
     Dosage: 1 AMPOULE EVERY 2 MONTHS
     Route: 048
  29. ADVAGRAF [Concomitant]
     Active Substance: TACROLIMUS
     Indication: PROPHYLAXIS AGAINST TRANSPLANT REJECTION
     Dosage: 2 MILLIGRAM, QD (2-0-0)
     Route: 048

REACTIONS (2)
  - Neutropenia [Recovering/Resolving]
  - Agranulocytosis [Recovered/Resolved]

NARRATIVE: CASE EVENT DATE: 20190730
